FAERS Safety Report 8376810 (Version 2)
Quarter: 2013Q1

REPORT INFORMATION
  Report Type: Report from Study
  Country: US (occurrence: US)
  Receive Date: 20120129
  Receipt Date: 20130129
  Transmission Date: 20140127
  Serious: No
  Sender: FDA-Public Use
  Company Number: US-ABBOTT-11P-163-0874547-00

PATIENT
  Sex: Female

DRUGS (1)
  1. HUMIRA 40 MG/0.8 ML PEN [Suspect]
     Indication: PRODUCT USED FOR UNKNOWN INDICATION
     Route: 058
     Dates: start: 200807

REACTIONS (6)
  - Fatigue [Unknown]
  - Arterial occlusive disease [Unknown]
  - Influenza [Unknown]
  - Blood glucose increased [Unknown]
  - Blood pressure increased [Unknown]
  - Stress [Unknown]
